FAERS Safety Report 8810458 (Version 2)
Quarter: 2012Q4

REPORT INFORMATION
  Report Type: 
  Country: US (occurrence: US)
  Receive Date: 20120927
  Receipt Date: 20121111
  Transmission Date: 20130627
  Serious: Yes (Other)
  Sender: FDA-Public Use
  Company Number: US-BRISTOL-MYERS SQUIBB COMPANY-16970451

PATIENT
  Sex: Female

DRUGS (3)
  1. TAXOL [Suspect]
     Indication: OVARIAN CANCER RECURRENT
     Dosage: Intrpd for a year and restarted.
     Dates: start: 201106, end: 20120917
  2. BENADRYL [Concomitant]
     Indication: PREMEDICATION
  3. DECADRON [Concomitant]

REACTIONS (4)
  - Back pain [Unknown]
  - Restlessness [Unknown]
  - Agitation [Unknown]
  - Confusional state [Unknown]
